FAERS Safety Report 13030672 (Version 1)
Quarter: 2016Q4

REPORT INFORMATION
  Report Type: Spontaneous
  Country: US (occurrence: US)
  Receive Date: 20161215
  Receipt Date: 20161215
  Transmission Date: 20170207
  Serious: Yes (Other)
  Sender: FDA-Public Use
  Company Number: US-LPDUSPRD-20161102

PATIENT
  Age: 28 Year
  Sex: Male

DRUGS (5)
  1. SODIUM PHOSPHATES INJECTION, USP (3405-25) [Suspect]
     Active Substance: SODIUM PHOSPHATE, DIBASIC, ANHYDROUS\SODIUM PHOSPHATE, MONOBASIC, MONOHYDRATE
     Dosage: DOSE UNKNOWN
     Route: 065
  2. FOLATE [Concomitant]
     Active Substance: FOLATE SODIUM
     Dosage: DOSE UNKNOWN
     Route: 065
  3. PREDNISOLONE. [Concomitant]
     Active Substance: PREDNISOLONE
     Dosage: DOSE UNKNOWN
     Route: 065
  4. POTASSIUM PHOSPHATES INJECTION, USP (2305-25) [Suspect]
     Active Substance: POTASSIUM PHOSPHATE, DIBASIC\POTASSIUM PHOSPHATE, MONOBASIC
     Dosage: DOSE UNKNOWN
     Route: 065
  5. THIAMINE. [Concomitant]
     Active Substance: THIAMINE
     Dosage: HIGH DOSE
     Route: 065

REACTIONS (1)
  - Encephalopathy [Unknown]
